FAERS Safety Report 8784620 (Version 1)
Quarter: 2012Q4

REPORT INFORMATION
  Report Type: Spontaneous
  Country: US (occurrence: None)
  Receive Date: 20120831
  Receipt Date: 20120831
  Transmission Date: 20130627
  Serious: Yes (Death, Hospitalization)
  Sender: FDA-Public Use
  Company Number: HA12-253-AE

PATIENT
  Age: 48 Year
  Sex: Male

DRUGS (3)
  1. IBUPROFEN [Suspect]
     Dosage: 200tabs
     Route: 048
  2. COLCHICINE [Concomitant]
  3. INDOMETHACIN [Concomitant]

REACTIONS (17)
  - Overdose [None]
  - Hypotension [None]
  - Depressed level of consciousness [None]
  - Troponin increased [None]
  - Hyporesponsive to stimuli [None]
  - Lethargy [None]
  - Dehydration [None]
  - Blood urea increased [None]
  - Blood creatinine increased [None]
  - International normalised ratio increased [None]
  - Diarrhoea haemorrhagic [None]
  - Platelet count increased [None]
  - Aspartate aminotransferase increased [None]
  - Alanine aminotransferase increased [None]
  - White blood cell count increased [None]
  - Abdominal pain [None]
  - Vomiting [None]
